FAERS Safety Report 16712187 (Version 2)
Quarter: 2019Q3

REPORT INFORMATION
  Report Type: Spontaneous
  Country: IE (occurrence: IE)
  Receive Date: 20190816
  Receipt Date: 20190828
  Transmission Date: 20191004
  Serious: Yes (Other)
  Sender: FDA-Public Use
  Company Number: IE-GLAXOSMITHKLINE-IE2019GSK146237

PATIENT
  Age: 4 Year
  Sex: Male

DRUGS (3)
  1. SCOPODERM/TRANSDERM-SCOP [Suspect]
     Active Substance: SCOPOLAMINE HYDROBROMIDE
     Indication: PRODUCT USED FOR UNKNOWN INDICATION
     Dosage: UNK
     Route: 062
  2. FLIXOTIDE [Concomitant]
     Active Substance: FLUTICASONE PROPIONATE
     Indication: PRODUCT USED FOR UNKNOWN INDICATION
     Dosage: 125 UG, UNK
  3. EPILIM [Concomitant]
     Active Substance: VALPROATE SODIUM
     Indication: PRODUCT USED FOR UNKNOWN INDICATION
     Dosage: 450 MG, QD

REACTIONS (4)
  - Pupils unequal [Recovered/Resolved]
  - Mydriasis [Recovered/Resolved]
  - Strabismus [Recovered/Resolved]
  - Pupil fixed [Recovered/Resolved]
